FAERS Safety Report 14498194 (Version 1)
Quarter: 2018Q1

REPORT INFORMATION
  Report Type: Spontaneous
  Country: US (occurrence: US)
  Receive Date: 20180206
  Receipt Date: 20180206
  Transmission Date: 20180509
  Serious: Yes (Life-Threatening, Disabling)
  Sender: FDA-Public Use
  Company Number: None

PATIENT
  Age: 47 Year
  Sex: Male
  Weight: 76.5 kg

DRUGS (1)
  1. REPATHA [Suspect]
     Active Substance: EVOLOCUMAB
     Indication: LOW DENSITY LIPOPROTEIN INCREASED
     Dosage: ?          OTHER FREQUENCY:INJECT EVERY 2 WK;?
     Route: 058
     Dates: start: 20170401, end: 20170701

REACTIONS (5)
  - Amyotrophic lateral sclerosis [None]
  - Sinus disorder [None]
  - Therapy cessation [None]
  - Dysphagia [None]
  - Speech disorder [None]

NARRATIVE: CASE EVENT DATE: 20170701
